FAERS Safety Report 6651642-4 (Version None)
Quarter: 2010Q1

REPORT INFORMATION
  Report Type: 
  Country: None (occurrence: None)
  Receive Date: 20100322
  Receipt Date: 20100312
  Transmission Date: 20100710
  Serious: Yes (Other)
  Sender: FDA-Public Use
  Company Number: 2010SP015948

PATIENT
  Age: 66 Year
  Sex: Male

DRUGS (5)
  1. MIRTAZAPINE [Suspect]
     Indication: DEPRESSION
     Dosage: 15 MG;QD;PO
     Route: 048
     Dates: start: 20100304, end: 20100309
  2. CALCIUM CARBONATE (CON.) [Concomitant]
  3. OXATOMIDE (CON.) [Concomitant]
  4. ETHYL ICOSAPENTATE (CON.) [Concomitant]
  5. CHINESE HERBAL MEDICINE (CON.) [Concomitant]

REACTIONS (1)
  - PLATELET COUNT DECREASED [None]
